FAERS Safety Report 4590884-9 (Version None)
Quarter: 2005Q1

REPORT INFORMATION
  Report Type: 
  Country: None (occurrence: None)
  Receive Date: 20050225
  Receipt Date: 20040723
  Transmission Date: 20050727
  Serious: No
  Sender: FDA-Public Use
  Company Number: US-GLAXOSMITHKLINE-A0519540A

PATIENT
  Age: 34 Year
  Sex: Male
  Weight: 89.5 kg

DRUGS (5)
  1. ZIAGEN [Suspect]
     Indication: HIV INFECTION
     Route: 065
     Dates: start: 20040101
  2. BACTRIM [Concomitant]
  3. COMBIVIR [Concomitant]
     Dates: start: 20040101
  4. SUSTIVA [Concomitant]
     Dates: start: 20040101
  5. ADVIL [Concomitant]

REACTIONS (5)
  - FATIGUE [None]
  - HYPERSENSITIVITY [None]
  - MALAISE [None]
  - MYALGIA [None]
  - PYREXIA [None]
